FAERS Safety Report 11783637 (Version 1)
Quarter: 2015Q4

REPORT INFORMATION
  Report Type: Spontaneous
  Country: US (occurrence: US)
  Receive Date: 20151127
  Receipt Date: 20151127
  Transmission Date: 20160305
  Serious: No
  Sender: FDA-Public Use
  Company Number: US-INVAGEN PHARMACEUTICALS, INC.-1044711

PATIENT
  Sex: Female

DRUGS (3)
  1. CITALOPRAM [Suspect]
     Active Substance: CITALOPRAM HYDROBROMIDE
     Route: 048
  2. LISINOPRIL. [Suspect]
     Active Substance: LISINOPRIL
  3. SINGULAIR [Suspect]
     Active Substance: MONTELUKAST SODIUM

REACTIONS (2)
  - Abdominal distension [Unknown]
  - Abdominal pain [Unknown]
